FAERS Safety Report 5994831-4 (Version None)
Quarter: 2008Q4

REPORT INFORMATION
  Report Type: 
  Country: None (occurrence: None)
  Receive Date: 20081212
  Receipt Date: 20081009
  Transmission Date: 20090506
  Serious: No
  Sender: FDA-Public Use
  Company Number: US-ABBOTT-08P-163-0476485-00

PATIENT
  Sex: Male
  Weight: 90.8 kg

DRUGS (2)
  1. HUMIRA [Suspect]
     Indication: PSORIASIS
     Route: 058
     Dates: start: 20080301, end: 20080827
  2. TOPICAL OINTMENT [Concomitant]
     Indication: PSORIASIS
     Dosage: APPLIED TO AFFECTED AREAS DAILY
     Route: 061

REACTIONS (5)
  - DRUG INEFFECTIVE [None]
  - INJECTION SITE HAEMATOMA [None]
  - PSORIASIS [None]
  - SKIN DISCOLOURATION [None]
  - SKIN EXFOLIATION [None]
